FAERS Safety Report 5334228-3 (Version None)
Quarter: 2007Q2

REPORT INFORMATION
  Report Type: 
  Country: None (occurrence: None)
  Receive Date: 20070525
  Receipt Date: 20060427
  Transmission Date: 20071010
  Serious: No
  Sender: FDA-Public Use
  Company Number: A0601825A

PATIENT
  Age: 21 Month
  Sex: Male

DRUGS (2)
  1. BACTROBAN [Suspect]
     Indication: ECZEMA
     Route: 061
     Dates: start: 20060412, end: 20060412
  2. NO CONCURRENT MEDICATION [Concomitant]

REACTIONS (4)
  - BURNING SENSATION [None]
  - ERYTHEMA [None]
  - HYPERSENSITIVITY [None]
  - PAIN IN EXTREMITY [None]
